FAERS Safety Report 8965851 (Version 1)
Quarter: 2012Q4

REPORT INFORMATION
  Report Type: Spontaneous
  Country: US (occurrence: None)
  Receive Date: 20121213
  Receipt Date: 20121213
  Transmission Date: 20130627
  Serious: No
  Sender: FDA-Public Use
  Company Number: None

PATIENT
  Age: 53 Year
  Sex: Female

DRUGS (6)
  1. REVLIMID 10MG CELGENE [Suspect]
     Dosage: Revlimid 10 mg daily x21d/ 28d orally
     Route: 048
     Dates: start: 201206
  2. METFORMIN [Concomitant]
  3. OMEPRAZOLE [Concomitant]
  4. SIMVASTATIN [Concomitant]
  5. LORAZEPAM [Concomitant]
  6. PROCHLORPERAZINE [Concomitant]

REACTIONS (1)
  - Neutropenia [None]
